FAERS Safety Report 14092216 (Version 1)
Quarter: 2017Q4

REPORT INFORMATION
  Report Type: Spontaneous
  Country: US (occurrence: US)
  Receive Date: 20171014
  Receipt Date: 20171014
  Transmission Date: 20180321
  Serious: Yes (Other)
  Sender: FDA-Public Use
  Company Number: None

PATIENT
  Age: 66 Year
  Sex: Male
  Weight: 90.45 kg

DRUGS (5)
  1. CLOPIDOGREL [Suspect]
     Active Substance: CLOPIDOGREL BISULFATE
     Indication: CARDIAC DISORDER
  2. NOVOLIN ^N^ [Concomitant]
  3. BABY ASPIRIN [Concomitant]
     Active Substance: ASPIRIN
  4. HUMULIN ^R^ [Concomitant]
  5. LISINOPRIL. [Concomitant]
     Active Substance: LISINOPRIL

REACTIONS (1)
  - Blood urine present [None]

NARRATIVE: CASE EVENT DATE: 20171010
